FAERS Safety Report 5624415-9 (Version None)
Quarter: 2008Q1

REPORT INFORMATION
  Report Type: 
  Country: None (occurrence: None)
  Receive Date: 20080213
  Receipt Date: 20080211
  Transmission Date: 20080703
  Serious: Yes (Other)
  Sender: FDA-Public Use
  Company Number: US-BRISTOL-MYERS SQUIBB COMPANY-13947684

PATIENT
  Age: 33 Year
  Sex: Female
  Weight: 102 kg

DRUGS (1)
  1. SPRYCEL [Suspect]
     Indication: CHRONIC MYELOID LEUKAEMIA
     Dosage: STUDY DRUG HELD UNTIL SPONTANEOUS ABORTION.
     Route: 048
     Dates: start: 20050425, end: 20071015

REACTIONS (2)
  - ABORTION SPONTANEOUS [None]
  - PREGNANCY [None]
